FAERS Safety Report 15051210 (Version 1)
Quarter: 2018Q2

REPORT INFORMATION
  Report Type: Spontaneous
  Country: AT (occurrence: AT)
  Receive Date: 20180622
  Receipt Date: 20180622
  Transmission Date: 20180711
  Serious: Yes (Hospitalization)
  Sender: FDA-Public Use
  Company Number: AT-SA-2018SA150028

PATIENT
  Age: 59 Year
  Sex: Male

DRUGS (6)
  1. EZETIMIBE. [Suspect]
     Active Substance: EZETIMIBE
     Indication: CORONARY ARTERY DISEASE
     Dosage: 1 DF, QD
     Route: 065
     Dates: end: 20180513
  2. PREDNISOLON [PREDNISOLONE] [Concomitant]
  3. ATORVASTATIN CALCIUM. [Suspect]
     Active Substance: ATORVASTATIN CALCIUM
     Indication: CORONARY ARTERY DISEASE
     Dosage: 1 DF, QD
     Route: 065
     Dates: end: 20180513
  4. XYZAL [Suspect]
     Active Substance: LEVOCETIRIZINE DIHYDROCHLORIDE
     Indication: HYPERSENSITIVITY
     Dosage: 1 DF, QD
     Route: 065
  5. THROMBO ASS [Concomitant]
     Active Substance: ASPIRIN
  6. CANDESARCOMP [Concomitant]

REACTIONS (1)
  - Acute hepatic failure [Recovering/Resolving]

NARRATIVE: CASE EVENT DATE: 20180512
